FAERS Safety Report 7647376-X (Version None)
Quarter: 2011Q3

REPORT INFORMATION
  Report Type: 
  Country: None (occurrence: None)
  Receive Date: 20110801
  Receipt Date: 20110725
  Transmission Date: 20111222
  Serious: Yes (Other)
  Sender: FDA-Public Use
  Company Number: DE-ROCHE-793240

PATIENT
  Sex: Female

DRUGS (1)
  1. VALCYTE [Suspect]
     Dosage: DOSE: 1 TABLET
     Route: 065
     Dates: start: 20110715

REACTIONS (2)
  - DYSPNOEA [None]
  - SWOLLEN TONGUE [None]
